FAERS Safety Report 8431703-X (Version None)
Quarter: 2012Q2

REPORT INFORMATION
  Report Type: 
  Country: None (occurrence: None)
  Receive Date: 20120613
  Receipt Date: 20120604
  Transmission Date: 20120825
  Serious: Yes (Hospitalization, Other)
  Sender: FDA-Public Use
  Company Number: US-BAYER-201018990NA

PATIENT
  Age: 39 Year
  Sex: Female
  Weight: 57 kg

DRUGS (12)
  1. PRECARE [Concomitant]
     Dosage: UNK
     Dates: start: 20010101
  2. CALCIUM CARBONATE [Concomitant]
  3. FOSPHENYTOIN SODIUM [Concomitant]
  4. ATIVAN [Concomitant]
  5. YAZ [Suspect]
     Dosage: UNK
     Route: 048
     Dates: start: 20061101, end: 20080301
  6. PROPOFOL [Concomitant]
     Dosage: UNK
     Dates: start: 20080322
  7. MORPHINE [Concomitant]
  8. MULTI-VITAMIN [Concomitant]
     Dosage: UNK UNK, QD
  9. DESOGEN [Concomitant]
     Dosage: UNK
     Dates: start: 20010101
  10. DIPRIVAN [Concomitant]
  11. ORTHO MICRONOR-28 [Concomitant]
     Dosage: UNK
     Dates: start: 20010101
  12. SODIUM CHLORIDE [Concomitant]
     Dosage: 3 %, UNK

REACTIONS (3)
  - CEREBROVASCULAR ACCIDENT [None]
  - DEEP VEIN THROMBOSIS [None]
  - BRAIN INJURY [None]
